FAERS Safety Report 25945772 (Version 1)
Quarter: 2025Q4

REPORT INFORMATION
  Report Type: Spontaneous
  Country: EU (occurrence: EU)
  Receive Date: 20251021
  Receipt Date: 20251021
  Transmission Date: 20260118
  Serious: Yes (Hospitalization)
  Sender: NOVO NORDISK
  Company Number: None

PATIENT
  Age: 33 Year
  Sex: Female
  Weight: 92 kg

DRUGS (1)
  1. WEGOVY [Suspect]
     Active Substance: SEMAGLUTIDE
     Indication: Obesity
     Dosage: 0.25 MG, QW
     Dates: start: 20250328, end: 20250427

REACTIONS (8)
  - Aura [Recovered/Resolved]
  - Photopsia [Recovered/Resolved]
  - Eructation [Not Recovered/Not Resolved]
  - Vomiting [Not Recovered/Not Resolved]
  - Nausea [Not Recovered/Not Resolved]
  - Diarrhoea [Not Recovered/Not Resolved]
  - Headache [Not Recovered/Not Resolved]
  - Wrong technique in product usage process [Recovered/Resolved]

NARRATIVE: CASE EVENT DATE: 20250328
